FAERS Safety Report 8112253-7 (Version None)
Quarter: 2012Q1

REPORT INFORMATION
  Report Type: 
  Country: None (occurrence: None)
  Receive Date: 20120131
  Receipt Date: 20120118
  Transmission Date: 20120608
  Serious: Yes (Hospitalization)
  Sender: FDA-Public Use
  Company Number: USA/USA/12/0022794

PATIENT
  Age: 43 Year
  Sex: Male

DRUGS (4)
  1. LISINOPRIL [Concomitant]
  2. IBUPROFEN TABLETS [Suspect]
     Indication: PRODUCT USED FOR UNKNOWN INDICATION
     Dosage: 400 MG, EVERY 8 HOURS AS
  3. SIMVASTATIN [Concomitant]
  4. CLONIDINE [Concomitant]

REACTIONS (6)
  - HEPATIC FAILURE [None]
  - RENAL FAILURE ACUTE [None]
  - GRANULOMATOUS LIVER DISEASE [None]
  - ASCITES [None]
  - NEPHROTIC SYNDROME [None]
  - RENAL TUBULAR NECROSIS [None]
